FAERS Safety Report 25381480 (Version 1)
Quarter: 2025Q2

REPORT INFORMATION
  Report Type: Report from Study
  Country: US (occurrence: US)
  Receive Date: 20250530
  Receipt Date: 20250530
  Transmission Date: 20250717
  Serious: No
  Sender: MALLINCKRODT
  Company Number: US-MALLINCKRODT-MNK202501762

PATIENT
  Sex: Male

DRUGS (3)
  1. CORTICOTROPIN [Suspect]
     Active Substance: CORTICOTROPIN
     Indication: Rheumatoid arthritis
  2. CORTICOTROPIN [Suspect]
     Active Substance: CORTICOTROPIN
     Indication: Punctate keratitis
  3. HUMIRA [Concomitant]
     Active Substance: ADALIMUMAB

REACTIONS (3)
  - Feeling abnormal [Unknown]
  - Weight decreased [Recovering/Resolving]
  - Glycosylated haemoglobin increased [Recovering/Resolving]
